FAERS Safety Report 7555679-2 (Version None)
Quarter: 2011Q2

REPORT INFORMATION
  Report Type: 
  Country: None (occurrence: None)
  Receive Date: 20110617
  Receipt Date: 20110506
  Transmission Date: 20111010
  Serious: Yes (Other)
  Sender: FDA-Public Use
  Company Number: PHHY2011JP48980

PATIENT

DRUGS (1)
  1. EVEROLIMUS [Suspect]
     Indication: METASTATIC RENAL CELL CARCINOMA
     Dosage: 10 MG /DAY DAILY
     Dates: start: 20100416, end: 20100821

REACTIONS (2)
  - DISEASE PROGRESSION [None]
  - DRUG INTOLERANCE [None]
